FAERS Safety Report 4856935-9 (Version None)
Quarter: 2005Q4

REPORT INFORMATION
  Report Type: 
  Country: None (occurrence: None)
  Receive Date: 20051219
  Receipt Date: 20041130
  Transmission Date: 20060501
  Serious: No
  Sender: FDA-Public Use
  Company Number: US-GLAXOSMITHKLINE-A0535533A

PATIENT
  Age: 55 Year
  Sex: Female

DRUGS (3)
  1. EQUATE NTS 21MG [Suspect]
     Dates: start: 20041112, end: 20041113
  2. REMICADE [Concomitant]
  3. PREDNISONE TAB [Concomitant]

REACTIONS (2)
  - APPLICATION SITE DERMATITIS [None]
  - RASH [None]
